FAERS Safety Report 19258633 (Version 3)
Quarter: 2022Q1

REPORT INFORMATION
  Report Type: Spontaneous
  Country: US (occurrence: US)
  Receive Date: 20210514
  Receipt Date: 20220217
  Transmission Date: 20220423
  Serious: No
  Sender: FDA-Public Use
  Company Number: US-GLAXOSMITHKLINE-US2021AMR102521

PATIENT
  Age: 75 Year
  Sex: Female

DRUGS (3)
  1. ZEJULA [Suspect]
     Active Substance: NIRAPARIB
     Indication: Connective tissue neoplasm
     Dosage: 200 MG, QD
     Dates: start: 20200811
  2. ZEJULA [Suspect]
     Active Substance: NIRAPARIB
     Indication: Soft tissue neoplasm
     Dosage: 200 MG, QD
     Route: 048
     Dates: end: 20220114
  3. ZEJULA [Suspect]
     Active Substance: NIRAPARIB
     Indication: Peripheral nervous system neoplasm
     Dosage: 200 MG

REACTIONS (3)
  - COVID-19 [Recovering/Resolving]
  - Product use in unapproved indication [Unknown]
  - Cardiac operation [Unknown]

NARRATIVE: CASE EVENT DATE: 20210421
